FAERS Safety Report 6260660-X (Version None)
Quarter: 2009Q3

REPORT INFORMATION
  Report Type: 
  Country: None (occurrence: None)
  Receive Date: 20090708
  Receipt Date: 20090702
  Transmission Date: 20100115
  Serious: Yes (Other)
  Sender: FDA-Public Use
  Company Number: US-AMGEN-KDL352527

PATIENT
  Sex: Male
  Weight: 72.6 kg

DRUGS (1)
  1. PROCRIT [Suspect]
     Indication: ANAEMIA
     Route: 058
     Dates: start: 20050101, end: 20080101

REACTIONS (13)
  - ASTHENIA [None]
  - DIZZINESS [None]
  - FALL [None]
  - HAEMOGLOBIN DECREASED [None]
  - HIP ARTHROPLASTY [None]
  - IMMUNE SYSTEM DISORDER [None]
  - IMPAIRED HEALING [None]
  - INFECTION [None]
  - INFECTION SUSCEPTIBILITY INCREASED [None]
  - MYOCARDIAL INFARCTION [None]
  - OXYGEN CONSUMPTION DECREASED [None]
  - QUALITY OF LIFE DECREASED [None]
  - SOMNOLENCE [None]
